FAERS Safety Report 10608450 (Version 1)
Quarter: 2014Q4

REPORT INFORMATION
  Report Type: Spontaneous
  Country: IL (occurrence: IL)
  Receive Date: 20141125
  Receipt Date: 20141125
  Transmission Date: 20150529
  Serious: Yes (Hospitalization)
  Sender: FDA-Public Use
  Company Number: PHHY2014IL149941

PATIENT

DRUGS (1)
  1. MINOCYCLINE [Suspect]
     Active Substance: MINOCYCLINE\MINOCYCLINE HYDROCHLORIDE
     Indication: ACNE
     Dosage: 100 MG, BID
     Route: 065

REACTIONS (11)
  - Pyrexia [Recovered/Resolved]
  - Weight decreased [Unknown]
  - Cachexia [Recovered/Resolved]
  - Acute kidney injury [Recovered/Resolved]
  - Erythema nodosum [Recovered/Resolved]
  - Orchitis [Recovered/Resolved]
  - Blood creatinine increased [Recovered/Resolved]
  - Arthralgia [Recovered/Resolved]
  - Myalgia [Recovered/Resolved]
  - Polyarteritis nodosa [Recovered/Resolved]
  - Antineutrophil cytoplasmic antibody positive [Recovered/Resolved]
